FAERS Safety Report 7912352-6 (Version None)
Quarter: 2011Q4

REPORT INFORMATION
  Report Type: 
  Country: None (occurrence: None)
  Receive Date: 20111114
  Receipt Date: 20110802
  Transmission Date: 20120403
  Serious: No
  Sender: FDA-Public Use
  Company Number: US-BAYER-2011-070238

PATIENT
  Age: 73 Year
  Sex: Female
  Weight: 52 kg

DRUGS (3)
  1. ALPRAZOLAM [Concomitant]
  2. CITALOPRAM HYDROBROMIDE [Concomitant]
  3. ALEVE (CAPLET) [Suspect]
     Indication: HEADACHE
     Dosage: UNK, BID
     Route: 048
     Dates: start: 20110802

REACTIONS (1)
  - HEADACHE [None]
